FAERS Safety Report 16994144 (Version 1)
Quarter: 2019Q4

REPORT INFORMATION
  Report Type: Spontaneous
  Country: US (occurrence: US)
  Receive Date: 20191105
  Receipt Date: 20191105
  Transmission Date: 20200122
  Serious: No
  Sender: FDA-Public Use
  Company Number: US-AMGEN-USASP2019181114

PATIENT
  Age: 16 Year
  Sex: Female

DRUGS (2)
  1. ENBREL [Suspect]
     Active Substance: ETANERCEPT
     Indication: PSORIASIS
     Dosage: 50 MILLIGRAM, 2 TIMES/WK
     Route: 065
     Dates: start: 2018
  2. ENBREL [Suspect]
     Active Substance: ETANERCEPT
     Indication: ECZEMA

REACTIONS (3)
  - Accidental exposure to product [Unknown]
  - Inappropriate schedule of product administration [Unknown]
  - Product packaging issue [Unknown]

NARRATIVE: CASE EVENT DATE: 201910
